FAERS Safety Report 6248360-3 (Version None)
Quarter: 2009Q2

REPORT INFORMATION
  Report Type: 
  Country: None (occurrence: None)
  Receive Date: 20090629
  Receipt Date: 20090622
  Transmission Date: 20091009
  Serious: Yes (Other)
  Sender: FDA-Public Use
  Company Number: PHHY2009DE21515

PATIENT
  Sex: Male
  Weight: 107 kg

DRUGS (7)
  1. EMSELEX EXTENDED RELEASE [Suspect]
     Indication: URGE INCONTINENCE
     Dosage: UNK
     Dates: start: 20080601
  2. EMSELEX EXTENDED RELEASE [Suspect]
     Indication: NEUROGENIC BLADDER
     Dosage: 15 MG, QD
     Route: 065
     Dates: start: 20090318, end: 20090329
  3. ANTIBIOTICS [Concomitant]
     Dosage: UNK
     Dates: start: 20090301
  4. TAMSULOSIN HCL [Concomitant]
  5. RAMIPRIL [Concomitant]
  6. L-DOPA [Concomitant]
  7. METOPROLOL SUCCINATE [Concomitant]

REACTIONS (1)
  - SKIN NECROSIS [None]
